FAERS Safety Report 7522925-0 (Version None)
Quarter: 2011Q2

REPORT INFORMATION
  Report Type: 
  Country: None (occurrence: None)
  Receive Date: 20110603
  Receipt Date: 20110520
  Transmission Date: 20111010
  Serious: Yes (Other)
  Sender: FDA-Public Use
  Company Number: PHHY2011US39777

PATIENT
  Sex: Male

DRUGS (11)
  1. SPIRONOLACTONE [Suspect]
     Indication: HYPERTENSION
     Dosage: 25 MG, DAILY
     Route: 048
  2. SPIRONOLACTONE [Suspect]
     Indication: OEDEMA
  3. THEOPHYLLINE [Concomitant]
     Indication: CHRONIC OBSTRUCTIVE PULMONARY DISEASE
     Dosage: 600 MG, DAILY
     Route: 048
  4. LASIX [Suspect]
     Indication: OEDEMA
  5. ATENOLOL [Concomitant]
     Indication: HYPERTENSION
     Dosage: 25 MG, DAILY
     Route: 048
  6. PREDNISONE [Concomitant]
     Indication: CHRONIC OBSTRUCTIVE PULMONARY DISEASE
     Dosage: 5 MG, DAILY
     Route: 048
  7. LASIX [Suspect]
     Indication: HYPERTENSION
     Dosage: 40 MG, TID
     Route: 048
  8. PROAIR (FLUTICASONE PROPIONATE) [Concomitant]
     Indication: CHRONIC OBSTRUCTIVE PULMONARY DISEASE
  9. GLEEVEC [Suspect]
     Indication: CHRONIC MYELOID LEUKAEMIA
     Dosage: 400 MG, DAILY
     Route: 048
     Dates: start: 20100831
  10. POTASSIUM CHLORIDE [Concomitant]
     Dosage: 40 MEQ, TID
     Route: 048
  11. SINGULAIR [Concomitant]
     Dosage: 10 MG, DAILY
     Route: 048

REACTIONS (4)
  - BLOOD CREATININE INCREASED [None]
  - POLYURIA [None]
  - RENAL DISORDER [None]
  - BLOOD POTASSIUM INCREASED [None]
